FAERS Safety Report 4458297-8 (Version None)
Quarter: 2004Q3

REPORT INFORMATION
  Report Type: 
  Country: None (occurrence: None)
  Receive Date: 20040924
  Receipt Date: 20040915
  Transmission Date: 20050211
  Serious: Yes (Hospitalization, Other)
  Sender: FDA-Public Use
  Company Number: PHBS2004NL12362

PATIENT
  Age: 53 Year

DRUGS (1)
  1. HYDROCHLOROTHIAZIDE [Suspect]
     Indication: HYPERTENSION

REACTIONS (13)
  - ACUTE RESPIRATORY DISTRESS SYNDROME [None]
  - BLOOD FIBRINOGEN DECREASED [None]
  - BLOOD LACTATE DEHYDROGENASE INCREASED [None]
  - CYANOSIS [None]
  - DIARRHOEA [None]
  - FIBRIN D DIMER INCREASED [None]
  - HAEMOGLOBIN INCREASED [None]
  - HYPOTENSION [None]
  - LEUKOPENIA [None]
  - NAUSEA [None]
  - PULMONARY OEDEMA [None]
  - TACHYCARDIA [None]
  - TACHYPNOEA [None]
